FAERS Safety Report 9117812 (Version 1)
Quarter: 2013Q1

REPORT INFORMATION
  Report Type: Spontaneous
  Country: US (occurrence: US)
  Receive Date: 20130128
  Receipt Date: 20130128
  Transmission Date: 20140127
  Serious: No
  Sender: FDA-Public Use
  Company Number: US-B.I. PHARMACEUTICALS,INC./RIDGEFIELD-2013-BI-02135BP

PATIENT
  Age: 89 Year
  Sex: Female
  Weight: 53 kg

DRUGS (3)
  1. PRADAXA [Suspect]
     Indication: ATRIAL FIBRILLATION
     Dosage: 300 MG
     Route: 048
     Dates: start: 20130112
  2. LEVOTHYROXINE [Concomitant]
     Indication: THYROID DISORDER
  3. AMITRIPTIYLINE [Concomitant]

REACTIONS (1)
  - Dry mouth [Not Recovered/Not Resolved]
